FAERS Safety Report 6992687-4 (Version None)
Quarter: 2010Q3

REPORT INFORMATION
  Report Type: 
  Country: None (occurrence: None)
  Receive Date: 20100917
  Receipt Date: 20100910
  Transmission Date: 20110219
  Serious: Yes (Hospitalization)
  Sender: FDA-Public Use
  Company Number: JP-MERCK-1009USA03328

PATIENT
  Age: 66 Year
  Sex: Female

DRUGS (7)
  1. JANUVIA [Suspect]
     Indication: DIABETES MELLITUS
     Route: 048
     Dates: start: 20100601, end: 20100905
  2. AMLODIPINE [Concomitant]
     Indication: HYPERTENSION
     Route: 048
  3. BLOPRESS [Concomitant]
     Indication: HYPERTENSION
     Route: 048
  4. LIPOBLOCK [Concomitant]
     Indication: DYSLIPIDAEMIA
     Route: 048
  5. CRAVIT [Concomitant]
     Route: 048
     Dates: start: 20100831
  6. MUCOSOLVAN L [Concomitant]
     Route: 048
     Dates: start: 20100831
  7. SINGULAIR [Concomitant]
     Route: 048
     Dates: start: 20100831

REACTIONS (3)
  - DRUG ERUPTION [None]
  - ERYTHEMA NODOSUM [None]
  - NASOPHARYNGITIS [None]
